FAERS Safety Report 25282581 (Version 2)
Quarter: 2025Q2

REPORT INFORMATION
  Report Type: Spontaneous
  Country: GB (occurrence: GB)
  Receive Date: 20250508
  Receipt Date: 20250520
  Transmission Date: 20250717
  Serious: Yes (Other)
  Sender: GALPHARM INTERNATIONAL
  Company Number: None

PATIENT
  Age: 67 Year
  Sex: Female
  Weight: 62 kg

DRUGS (1)
  1. CETIRIZINE HYDROCHLORIDE [Suspect]
     Active Substance: CETIRIZINE HYDROCHLORIDE
     Indication: Seasonal allergy
     Dosage: 10MG ONCE PER DAY
     Route: 048
     Dates: start: 20250417, end: 20250426

REACTIONS (7)
  - Swollen tongue [Recovering/Resolving]
  - Aphthous ulcer [Recovering/Resolving]
  - Oropharyngeal pain [Recovering/Resolving]
  - Rash erythematous [Recovering/Resolving]
  - Eye swelling [Recovering/Resolving]
  - Dry mouth [Unknown]
  - Sleep disorder [Unknown]

NARRATIVE: CASE EVENT DATE: 20250401
